FAERS Safety Report 16478537 (Version 2)
Quarter: 2020Q3

REPORT INFORMATION
  Report Type: Spontaneous
  Country: US (occurrence: US)
  Receive Date: 20190626
  Receipt Date: 20200820
  Transmission Date: 20201102
  Serious: Yes (Other)
  Sender: FDA-Public Use
  Company Number: US-PFIZER INC-2019272387

PATIENT
  Age: 72 Year
  Sex: Female
  Weight: 62.6 kg

DRUGS (11)
  1. XELJANZ [Suspect]
     Active Substance: TOFACITINIB CITRATE
     Indication: ARTHRITIS
     Dosage: 5 MG, 2X/DAY (1 TABLET 2 TIMES A DAY BY MOUTH)
     Route: 048
     Dates: start: 20190515
  2. METHOTREXATE. [Concomitant]
     Active Substance: METHOTREXATE
     Dosage: 1 MG (WHICH SHE TAKES EVERY SUNDAY)
  3. VITAMIN B50 COMPLEX [Concomitant]
     Active Substance: BIOTIN\CALCIUM PANTOTHENATE\CHOLINE BITARTRATE\CYANOCOBALAMIN\FOLIC ACID\INOSITOL\NIACINAMIDE\PYRIDOXINE\RIBOFLAVIN\THIAMINE
     Indication: CEREBROVASCULAR ACCIDENT
     Dosage: UNK
  4. HYDROXYCHLOROQUINE [Concomitant]
     Active Substance: HYDROXYCHLOROQUINE
     Indication: NERVE INJURY
     Dosage: 200 MG, 2X/DAY (1 TABLET TWICE A DAY)
     Route: 048
  5. FOLIC ACID. [Concomitant]
     Active Substance: FOLIC ACID
     Indication: SUPPLEMENTATION THERAPY
     Dosage: UNK
  6. GABAPENTIN. [Concomitant]
     Active Substance: GABAPENTIN
     Indication: NERVE INJURY
     Dosage: 600 MG (CAN TAKE 1 TABLET UP TO 3 TIMES A DAY, BUT TAKE TWICE A DAY)
     Route: 048
  7. HYDROXYCHLOROQUINE [Concomitant]
     Active Substance: HYDROXYCHLOROQUINE
     Indication: ARTHRITIS
  8. ROSUVASTATIN. [Concomitant]
     Active Substance: ROSUVASTATIN
     Indication: CARDIAC DISORDER
     Dosage: 20 MG, 1X/DAY
     Route: 048
  9. METOPROLOL. [Concomitant]
     Active Substance: METOPROLOL
     Indication: CARDIAC DISORDER
     Dosage: 50 MG, 1X/DAY (1 TABLET ONCE A DAY BY MOUTH)
     Route: 048
  10. ASPIRIN [ACETYLSALICYLIC ACID] [Concomitant]
     Active Substance: ASPIRIN
     Dosage: UNK, DAILY
  11. PREDNISONE. [Concomitant]
     Active Substance: PREDNISONE
     Dosage: UNK, AS NEEDED

REACTIONS (6)
  - Dyspepsia [Not Recovered/Not Resolved]
  - Stress [Unknown]
  - Hypertension [Unknown]
  - Diarrhoea [Not Recovered/Not Resolved]
  - Gastric disorder [Unknown]
  - Anxiety [Unknown]

NARRATIVE: CASE EVENT DATE: 201905
